FAERS Safety Report 7960079-7 (Version None)
Quarter: 2011Q4

REPORT INFORMATION
  Report Type: 
  Country: None (occurrence: None)
  Receive Date: 20111206
  Receipt Date: 20111129
  Transmission Date: 20120403
  Serious: Yes (Disabling, Other)
  Sender: FDA-Public Use
  Company Number: PHEH2011US00540

PATIENT
  Sex: Female
  Weight: 77.564 kg

DRUGS (8)
  1. RECLAST [Suspect]
     Indication: OSTEOPOROSIS
     Dosage: UNK
     Route: 042
     Dates: start: 20110728
  2. DIURETICS [Concomitant]
  3. IBUPROFEN [Concomitant]
  4. CADUET [Concomitant]
  5. SYNTHROID [Concomitant]
  6. HYDROCHLOROTHIAZID [Concomitant]
  7. THYROID TAB [Concomitant]
  8. HYDROCODONE [Concomitant]

REACTIONS (7)
  - DEPRESSION [None]
  - FATIGUE [None]
  - MOVEMENT DISORDER [None]
  - PAIN [None]
  - PARALYSIS [None]
  - DIZZINESS [None]
  - MYALGIA [None]
